FAERS Safety Report 4786971-2 (Version None)
Quarter: 2005Q4

REPORT INFORMATION
  Report Type: 
  Country: None (occurrence: None)
  Receive Date: 20051004
  Receipt Date: 20050928
  Transmission Date: 20060501
  Serious: Yes (Other)
  Sender: FDA-Public Use
  Company Number: US-GLAXOSMITHKLINE-A0576234A

PATIENT
  Sex: Female

DRUGS (2)
  1. ZANTAC [Suspect]
     Route: 048
     Dates: start: 20050801
  2. NO CONCURRENT MEDICATION [Concomitant]

REACTIONS (3)
  - AGITATION [None]
  - IRRITABILITY [None]
  - URTICARIA [None]
